FAERS Safety Report 13226000 (Version 1)
Quarter: 2017Q1

REPORT INFORMATION
  Report Type: Spontaneous
  Country: US (occurrence: US)
  Receive Date: 20170211
  Receipt Date: 20170211
  Transmission Date: 20170428
  Serious: Yes (Other)
  Sender: FDA-Public Use
  Company Number: None

PATIENT
  Age: 57 Year
  Sex: Female
  Weight: 76.5 kg

DRUGS (3)
  1. MOVANTIK [Suspect]
     Active Substance: NALOXEGOL OXALATE
     Indication: CONSTIPATION
     Dosage: ?          QUANTITY:1 TABLET(S);?
     Route: 048
     Dates: start: 20170210, end: 20170210
  2. MORPHINE [Concomitant]
     Active Substance: MORPHINE
  3. OXICODONE [Concomitant]

REACTIONS (10)
  - Gait disturbance [None]
  - Vomiting [None]
  - Diarrhoea [None]
  - Muscular weakness [None]
  - Arthralgia [None]
  - Hyperhidrosis [None]
  - Chills [None]
  - Headache [None]
  - Blood pressure increased [None]
  - Pain in extremity [None]

NARRATIVE: CASE EVENT DATE: 20170210
